FAERS Safety Report 6431267-6 (Version None)
Quarter: 2009Q4

REPORT INFORMATION
  Report Type: 
  Country: None (occurrence: None)
  Receive Date: 20091105
  Receipt Date: 20091105
  Transmission Date: 20100525
  Serious: Yes (Hospitalization)
  Sender: FDA-Public Use
  Company Number: None

PATIENT
  Age: 47 Year
  Sex: Male
  Weight: 84.8226 kg

DRUGS (7)
  1. NUVIGIL [Suspect]
     Indication: HYPERSOMNIA
     Dosage: 150 MG OR 250 MG ONCE PER DAY PO
     Route: 048
     Dates: start: 20091017, end: 20091027
  2. NUVIGIL [Suspect]
  3. VIAGRA [Concomitant]
  4. LIPITOR [Concomitant]
  5. BABY ASPIRIN [Concomitant]
  6. PROVIGIL [Concomitant]
  7. MULTI-VITAMIN [Concomitant]

REACTIONS (5)
  - HEART RATE INCREASED [None]
  - PALPITATIONS [None]
  - PARAESTHESIA [None]
  - PRESYNCOPE [None]
  - TINNITUS [None]
